FAERS Safety Report 26045551 (Version 1)
Quarter: 2025Q4

REPORT INFORMATION
  Report Type: Spontaneous
  Country: CN (occurrence: CN)
  Receive Date: 20251114
  Receipt Date: 20251114
  Transmission Date: 20260118
  Serious: Yes (Other)
  Sender: ABBVIE
  Company Number: CN-ABBVIE-6540843

PATIENT
  Age: 64 Year
  Sex: Female
  Weight: 48 kg

DRUGS (3)
  1. VENETOCLAX [Suspect]
     Active Substance: VENETOCLAX
     Indication: Acute myeloid leukaemia
     Dosage: 400 MILLIGRAM
     Route: 048
     Dates: start: 20250925, end: 20251001
  2. CYTARABINE [Suspect]
     Active Substance: CYTARABINE
     Indication: Acute myeloid leukaemia
     Dosage: ROUTE- INTRAVENOUS DRIP
     Route: 065
     Dates: start: 20250925, end: 20250927
  3. SODIUM CHLORIDE [Concomitant]
     Active Substance: SODIUM CHLORIDE
     Indication: Vehicle solution use
     Dosage: ROUTE- INTRAVENOUS DRIP
     Route: 065
     Dates: start: 20250925, end: 20250927

REACTIONS (5)
  - Gastrooesophageal reflux disease [Recovering/Resolving]
  - Pruritus [Recovering/Resolving]
  - Sensation of foreign body [Recovering/Resolving]
  - Dyspepsia [Recovering/Resolving]
  - Discomfort [Not Recovered/Not Resolved]

NARRATIVE: CASE EVENT DATE: 20250925
